FAERS Safety Report 8563776 (Version 2)
Quarter: 2014Q2

REPORT INFORMATION
  Report Type: Spontaneous
  Country: FR (occurrence: FR)
  Receive Date: 20120515
  Receipt Date: 20140530
  Transmission Date: 20141212
  Serious: Yes (Other)
  Sender: FDA-Public Use
  Company Number: FR-TEVA-336581ISR

PATIENT
  Age: 57 Year
  Sex: Male

DRUGS (6)
  1. QVAR AUTOHALER 50 MCG/DOSE [Suspect]
     Route: 055
     Dates: start: 20120416, end: 20120416
  2. TUSSIDANE [Suspect]
     Route: 048
  3. METFORMINE [Concomitant]
     Dosage: 500 MILLIGRAM DAILY; MAINTENANCE TREATMENT
  4. ALLOPURINOL [Concomitant]
     Dosage: 100 MILLIGRAM DAILY; MAINTENANCE TREATMENT
  5. LOPRESSOR LP [Concomitant]
     Dosage: 100 MILLIGRAM DAILY;
  6. SURGAM [Concomitant]
     Dosage: USUAL TREATMENT

REACTIONS (4)
  - Hypersensitivity [Recovered/Resolved]
  - Tongue oedema [Recovered/Resolved]
  - Dry mouth [Recovered/Resolved]
  - Reaction to drug excipients [Recovered/Resolved]
